FAERS Safety Report 6989752-4 (Version None)
Quarter: 2010Q3

REPORT INFORMATION
  Report Type: 
  Country: None (occurrence: None)
  Receive Date: 20100916
  Receipt Date: 20100219
  Transmission Date: 20110219
  Serious: Yes (Other)
  Sender: FDA-Public Use
  Company Number: BR-PFIZER INC-2010022482

PATIENT
  Sex: Male

DRUGS (8)
  1. LYRICA [Suspect]
     Indication: MYALGIA
     Dosage: 75 MG, 1X/DAY
     Route: 048
     Dates: start: 20100211, end: 20100213
  2. LYRICA [Suspect]
     Indication: SEDATIVE THERAPY
  3. BACLOFEN [Concomitant]
     Dosage: UNK
     Dates: start: 20050801
  4. OXYBUTYNIN [Concomitant]
     Dosage: UNK
     Dates: start: 20050801
  5. PURAN T4 [Concomitant]
     Dosage: UNK
     Dates: start: 20090801
  6. FERROUS SULFATE [Concomitant]
     Dosage: UNK
     Dates: start: 20090801
  7. OMEPRAZOLE [Concomitant]
     Dosage: OCCASIONALLY
     Dates: start: 20060101
  8. MEROPENEM [Concomitant]
     Indication: URINARY TRACT INFECTION
     Dosage: 500 MG, 2X/DAY
     Route: 042
     Dates: start: 20100126, end: 20100206

REACTIONS (6)
  - APHONIA [None]
  - DYSPHONIA [None]
  - HYPOAESTHESIA [None]
  - HYPOAESTHESIA EYE [None]
  - HYPOAESTHESIA ORAL [None]
  - SOMNOLENCE [None]
